FAERS Safety Report 10313683 (Version 1)
Quarter: 2014Q3

REPORT INFORMATION
  Report Type: Spontaneous
  Country: PE (occurrence: PE)
  Receive Date: 20140718
  Receipt Date: 20140718
  Transmission Date: 20150326
  Serious: Yes (Hospitalization)
  Sender: FDA-Public Use
  Company Number: PE-PFIZER INC-2014198745

PATIENT
  Age: 68 Year
  Sex: Female

DRUGS (2)
  1. PRISTIQ EXTENDED RELEASE [Suspect]
     Active Substance: DESVENLAFAXINE SUCCINATE
     Dosage: 50 MG, UNK
     Route: 048
  2. XANAX XR [Suspect]
     Active Substance: ALPRAZOLAM
     Dosage: 1 MG, UNK
     Route: 048

REACTIONS (6)
  - Nausea [Unknown]
  - Varicose vein [Unknown]
  - Tremor [Unknown]
  - Headache [Unknown]
  - Hyperhidrosis [Unknown]
  - Gastrointestinal sounds abnormal [Unknown]
